FAERS Safety Report 5444729-5 (Version None)
Quarter: 2007Q3

REPORT INFORMATION
  Report Type: 
  Country: None (occurrence: None)
  Receive Date: 20070906
  Receipt Date: 20070222
  Transmission Date: 20080115
  Serious: No
  Sender: FDA-Public Use
  Company Number: A0640587A

PATIENT
  Age: 56 Year
  Sex: Female

DRUGS (3)
  1. REQUIP [Suspect]
     Indication: RESTLESS LEGS SYNDROME
     Dosage: .5MG PER DAY
     Route: 048
  2. WELLBUTRIN [Concomitant]
  3. EFFEXOR [Concomitant]

REACTIONS (3)
  - HYPERHIDROSIS [None]
  - RESTLESS LEGS SYNDROME [None]
  - SOMNOLENCE [None]
